FAERS Safety Report 8836590 (Version 1)
Quarter: 2012Q4

REPORT INFORMATION
  Report Type: Spontaneous
  Country: US (occurrence: None)
  Receive Date: 20121009
  Receipt Date: 20121009
  Transmission Date: 20130627
  Serious: Yes (Other)
  Sender: FDA-Public Use
  Company Number: 2012SA070443

PATIENT
  Age: 48 Year
  Sex: Female

DRUGS (1)
  1. ICY HOT [Suspect]
     Indication: DRUG USE FOR UNKNOWN INDICATION
     Route: 061
     Dates: start: 20120915, end: 20120915

REACTIONS (4)
  - Chemical injury [None]
  - Blister [None]
  - Impaired healing [None]
  - Application site infection [None]
